FAERS Safety Report 8937183 (Version 1)
Quarter: 2012Q4

REPORT INFORMATION
  Report Type: Spontaneous
  Country: US (occurrence: None)
  Receive Date: 20121128
  Receipt Date: 20121128
  Transmission Date: 20130627
  Serious: Yes (Hospitalization)
  Sender: FDA-Public Use
  Company Number: None

PATIENT
  Age: 77 Year
  Sex: Female
  Weight: 60 kg

DRUGS (22)
  1. LANTUS SOLOSTAR [Suspect]
     Indication: DIABETES
     Dosage: 3 units, chronic
     Route: 058
  2. EC [Concomitant]
  3. ASA [Concomitant]
  4. LIPITOR [Concomitant]
  5. BUTRANS [Concomitant]
  6. WELLBUTRIN XL [Concomitant]
  7. VIT D3 [Concomitant]
  8. CYMBALTA [Concomitant]
  9. ADVAIR [Concomitant]
  10. DUONEB [Concomitant]
  11. COZAAR [Concomitant]
  12. PATADAY [Concomitant]
  13. FISH OIL [Concomitant]
  14. PRILOSEC [Concomitant]
  15. KLOR-CON SODIUM CHLORIDE [Concomitant]
  16. RESTORIL [Concomitant]
  17. THEOCHRON [Concomitant]
  18. ZYRTEC [Concomitant]
  19. FLEXERIL [Concomitant]
  20. POLYETHYLENE GLYCOL [Concomitant]
  21. COLACE [Concomitant]
  22. ZOFRAN [Concomitant]

REACTIONS (1)
  - Hypoglycaemia [None]
